FAERS Safety Report 20894806 (Version 1)
Quarter: 2022Q2

REPORT INFORMATION
  Report Type: Spontaneous
  Country: US (occurrence: US)
  Receive Date: 20220531
  Receipt Date: 20220531
  Transmission Date: 20220721
  Serious: No
  Sender: FDA-Public Use
  Company Number: US-PFIZER INC-202200757159

PATIENT
  Age: 63 Year
  Sex: Male
  Weight: 69.85 kg

DRUGS (1)
  1. PAXLOVID [Suspect]
     Active Substance: NIRMATRELVIR\RITONAVIR
     Indication: COVID-19 treatment
     Dosage: 3 DF, 2X/DAY
     Dates: start: 20220521, end: 20220522

REACTIONS (4)
  - Abdominal pain upper [Recovered/Resolved]
  - Dizziness [Recovering/Resolving]
  - Flatulence [Not Recovered/Not Resolved]
  - Vision blurred [Recovering/Resolving]

NARRATIVE: CASE EVENT DATE: 20220522
